FAERS Safety Report 7997402-3 (Version None)
Quarter: 2011Q4

REPORT INFORMATION
  Report Type: 
  Country: None (occurrence: None)
  Receive Date: 20111221
  Receipt Date: 20111216
  Transmission Date: 20120403
  Serious: Yes (Death, Other)
  Sender: FDA-Public Use
  Company Number: JP-JNJFOC-20100103546

PATIENT
  Sex: Female
  Weight: 45 kg

DRUGS (8)
  1. MEROPENEM [Concomitant]
     Route: 042
     Dates: start: 20091021, end: 20091028
  2. PARAPLATIN [Concomitant]
     Route: 042
     Dates: start: 20091007, end: 20091116
  3. DOXORUBICIN HCL [Suspect]
     Route: 042
     Dates: start: 20091007, end: 20091007
  4. DAI KENCHU TO [Concomitant]
     Route: 048
  5. ELTACIN [Concomitant]
     Route: 042
     Dates: start: 20091021, end: 20091028
  6. DOXORUBICIN HCL [Suspect]
     Indication: UTERINE CANCER
     Route: 042
     Dates: start: 20091116, end: 20091116
  7. GRAN [Concomitant]
     Route: 058
     Dates: start: 20091021, end: 20091025
  8. CONCENTRATED HUMAN BLOOD PLATELETS [Concomitant]
     Route: 041
     Dates: start: 20091023, end: 20091023

REACTIONS (3)
  - INTESTINAL OBSTRUCTION [None]
  - UTERINE CANCER [None]
  - PLATELET COUNT DECREASED [None]
